FAERS Safety Report 26101007 (Version 1)
Quarter: 2025Q4

REPORT INFORMATION
  Report Type: Report from Study
  Country: CO (occurrence: None)
  Receive Date: 20251128
  Receipt Date: 20251128
  Transmission Date: 20260118
  Serious: Yes (Hospitalization, Other)
  Sender: UCB
  Company Number: CO-UCBSA-2025075452

PATIENT
  Age: 45 Year

DRUGS (2)
  1. CIMZIA [Suspect]
     Active Substance: CERTOLIZUMAB PEGOL
     Indication: Ankylosing spondylitis
     Dosage: 400 MILLIGRAM, EV 30 DAYS
  2. ETORICOXIB [Concomitant]
     Active Substance: ETORICOXIB
     Indication: Product used for unknown indication
     Dosage: UNK

REACTIONS (6)
  - Pain [Not Recovered/Not Resolved]
  - Prostate cancer [Not Recovered/Not Resolved]
  - Orchidectomy [Not Recovered/Not Resolved]
  - Off label use [Unknown]
  - Product dispensing issue [Unknown]
  - Therapy interrupted [Unknown]
